FAERS Safety Report 8410790-9 (Version None)
Quarter: 2012Q2

REPORT INFORMATION
  Report Type: 
  Country: None (occurrence: None)
  Receive Date: 20120605
  Receipt Date: 20120528
  Transmission Date: 20120825
  Serious: Yes (Hospitalization)
  Sender: FDA-Public Use
  Company Number: JP-ASTELLAS-2012JP004215

PATIENT
  Sex: Male
  Weight: 45 kg

DRUGS (6)
  1. PROGRAF [Suspect]
     Indication: PROPHYLAXIS AGAINST TRANSPLANT REJECTION
     Dosage: 0.5 MG, BID
     Route: 048
     Dates: start: 20110818
  2. PREDNISOLONE [Suspect]
     Indication: PROPHYLAXIS AGAINST TRANSPLANT REJECTION
     Dosage: 10 MG, UID/QD
     Route: 048
     Dates: start: 20110818
  3. AZATHIOPRINE SODIUM [Suspect]
     Indication: IMMUNOSUPPRESSANT DRUG THERAPY
     Dosage: 100 MG, UID/QD
     Route: 048
     Dates: start: 19960701, end: 20110728
  4. PROGRAF [Suspect]
     Indication: IMMUNOSUPPRESSANT DRUG THERAPY
     Dosage: 1.5 MG, BID
     Route: 048
     Dates: start: 19960701, end: 20110817
  5. AZATHIOPRINE SODIUM [Suspect]
     Indication: PROPHYLAXIS AGAINST TRANSPLANT REJECTION
  6. PREDNISOLONE [Suspect]
     Indication: IMMUNOSUPPRESSANT DRUG THERAPY
     Dosage: 5 MG, UID/QD
     Route: 048
     Dates: start: 19960701, end: 20110817

REACTIONS (2)
  - INTUSSUSCEPTION [None]
  - POST TRANSPLANT LYMPHOPROLIFERATIVE DISORDER [None]
